APPROVED DRUG PRODUCT: BEPREVE
Active Ingredient: BEPOTASTINE BESILATE
Strength: 1.5%
Dosage Form/Route: SOLUTION/DROPS;OPHTHALMIC
Application: N022288 | Product #001 | TE Code: AT
Applicant: BAUSCH AND LOMB INC
Approved: Sep 8, 2009 | RLD: Yes | RS: Yes | Type: RX